FAERS Safety Report 23226734 (Version 1)
Quarter: 2023Q4

REPORT INFORMATION
  Report Type: Spontaneous
  Country: IT (occurrence: IT)
  Receive Date: 20231124
  Receipt Date: 20231124
  Transmission Date: 20240110
  Serious: Yes (Other)
  Sender: FDA-Public Use
  Company Number: IT-EMA-DD-20230810-7180175-110006

PATIENT
  Age: 52 Year
  Sex: Female
  Weight: 50 kg

DRUGS (7)
  1. CITALOPRAM [Suspect]
     Active Substance: CITALOPRAM HYDROBROMIDE
     Indication: Product used for unknown indication
     Dosage: UNKNOWN
     Route: 048
     Dates: start: 20170612, end: 20170612
  2. EN [Suspect]
     Active Substance: DELORAZEPAM
     Indication: Intentional self-injury
     Dosage: 2 MILIGRAMS TABLET
     Route: 048
     Dates: start: 20170612, end: 20170612
  3. EN [Suspect]
     Active Substance: DELORAZEPAM
     Dosage: ORAL DROPS, SOLUTION
     Route: 065
     Dates: start: 20170612, end: 20170612
  4. EN [Suspect]
     Active Substance: DELORAZEPAM
     Dosage: 1 MILIGRAMS TABLET
     Route: 065
     Dates: start: 20170612, end: 20170612
  5. CITALOPRAM [Suspect]
     Active Substance: CITALOPRAM HYDROBROMIDE
     Indication: Intentional self-injury
     Dosage: UNK
     Route: 048
     Dates: start: 20170612, end: 20170612
  6. CYMBALTA [Suspect]
     Active Substance: DULOXETINE HYDROCHLORIDE
     Indication: Intentional self-injury
     Dosage: UNKNOWN
     Route: 048
     Dates: start: 20170612, end: 20170612
  7. RABEPRAZOLE SODIUM [Suspect]
     Active Substance: RABEPRAZOLE SODIUM
     Indication: Intentional self-injury
     Dosage: UNKNOWN
     Route: 048
     Dates: start: 20170612, end: 20170612

REACTIONS (3)
  - Intentional self-injury [Unknown]
  - Sluggishness [Unknown]
  - Sopor [Unknown]

NARRATIVE: CASE EVENT DATE: 20170612
